FAERS Safety Report 5026050-2 (Version None)
Quarter: 2006Q2

REPORT INFORMATION
  Report Type: 
  Country: None (occurrence: None)
  Receive Date: 20060608
  Receipt Date: 20060531
  Transmission Date: 20061013
  Serious: Yes (Hospitalization)
  Sender: FDA-Public Use
  Company Number: MEDI-0004620

PATIENT
  Age: 14 Month

DRUGS (5)
  1. SYNAGIS [Suspect]
     Indication: ANTIVIRAL PROPHYLAXIS
     Dosage: SEE IMAGE
     Route: 030
     Dates: start: 20051011, end: 20051011
  2. SYNAGIS [Suspect]
     Indication: ANTIVIRAL PROPHYLAXIS
     Dosage: SEE IMAGE
     Route: 030
     Dates: start: 20051108
  3. SYNAGIS [Suspect]
     Indication: ANTIVIRAL PROPHYLAXIS
     Dosage: SEE IMAGE
     Route: 030
     Dates: start: 20051213
  4. SYNAGIS [Suspect]
     Indication: ANTIVIRAL PROPHYLAXIS
     Dosage: SEE IMAGE
     Route: 030
     Dates: start: 20060109
  5. SYNAGIS [Suspect]
     Indication: ANTIVIRAL PROPHYLAXIS
     Dosage: SEE IMAGE
     Route: 030
     Dates: start: 20060207

REACTIONS (3)
  - BRONCHIOLITIS [None]
  - CONVULSION [None]
  - HYPERTHERMIA [None]
